FAERS Safety Report 5700714-7 (Version None)
Quarter: 2008Q2

REPORT INFORMATION
  Report Type: 
  Country: None (occurrence: None)
  Receive Date: 20080410
  Receipt Date: 20080207
  Transmission Date: 20081010
  Serious: No
  Sender: FDA-Public Use
  Company Number: A0703009A

PATIENT
  Age: 71 Year
  Sex: Female
  Weight: 59.1 kg

DRUGS (2)
  1. TYKERB [Suspect]
     Route: 048
     Dates: start: 20070101
  2. XELODA [Suspect]
     Route: 065

REACTIONS (5)
  - EYE SWELLING [None]
  - NAIL BED INFECTION [None]
  - NAIL DISORDER [None]
  - PAIN IN EXTREMITY [None]
  - SWELLING FACE [None]
